FAERS Safety Report 5415992-1 (Version None)
Quarter: 2007Q3

REPORT INFORMATION
  Report Type: 
  Country: None (occurrence: None)
  Receive Date: 20070815
  Receipt Date: 20070803
  Transmission Date: 20080115
  Serious: Yes (Other)
  Sender: FDA-Public Use
  Company Number: US-PFIZER INC-2007066464

PATIENT
  Sex: Female
  Weight: 60.454 kg

DRUGS (4)
  1. LYRICA [Suspect]
     Indication: NEURALGIA
     Route: 048
  2. ANTIHISTAMINES [Concomitant]
     Indication: SINUS DISORDER
  3. CYMBALTA [Concomitant]
     Dosage: DAILY DOSE:60MG
  4. AMBIEN [Concomitant]
     Indication: INSOMNIA

REACTIONS (1)
  - INSOMNIA [None]
